FAERS Safety Report 23657622 (Version 1)
Quarter: 2024Q1

REPORT INFORMATION
  Report Type: Spontaneous
  Country: PT (occurrence: PT)
  Receive Date: 20240321
  Receipt Date: 20240321
  Transmission Date: 20240410
  Serious: Yes (Hospitalization, Congenital Anomaly, Other)
  Sender: FDA-Public Use
  Company Number: PT-SANDOZ-SDZ2024PT027691

PATIENT
  Sex: Male
  Weight: 2.11 kg

DRUGS (1)
  1. ENALAPRIL [Suspect]
     Active Substance: ENALAPRIL
     Indication: Product used for unknown indication
     Dosage: UNK
     Route: 065

REACTIONS (4)
  - Renin-angiotensin system inhibition [Unknown]
  - Hypotension [Unknown]
  - Renal failure [Unknown]
  - Foetal exposure during pregnancy [Unknown]
